FAERS Safety Report 25280852 (Version 1)
Quarter: 2025Q2

REPORT INFORMATION
  Report Type: Spontaneous
  Country: US (occurrence: US)
  Receive Date: 20250508
  Receipt Date: 20250508
  Transmission Date: 20250717
  Serious: Yes (Death)
  Sender: PROCTER AND GAMBLE
  Company Number: US-PROCTER+GAMBLE-PH25005054

PATIENT

DRUGS (2)
  1. DIPHENHYDRAMINE HYDROCHLORIDE [Suspect]
     Active Substance: DIPHENHYDRAMINE HYDROCHLORIDE
     Route: 048
  2. UNSPECIFIED INGREDIENT [Suspect]
     Active Substance: UNSPECIFIED INGREDIENT
     Route: 048

REACTIONS (1)
  - Toxicity to various agents [Fatal]
